FAERS Safety Report 21142116 (Version 1)
Quarter: 2022Q3

REPORT INFORMATION
  Report Type: Spontaneous
  Country: US (occurrence: None)
  Receive Date: 20220727
  Receipt Date: 20220727
  Transmission Date: 20221026
  Serious: Yes (Hospitalization)
  Sender: FDA-Public Use
  Company Number: None

PATIENT
  Age: 59 Year
  Sex: Female

DRUGS (1)
  1. GLATIRAMER [Suspect]
     Active Substance: GLATIRAMER
     Indication: Product used for unknown indication
     Dosage: FREQUENCY : 3 TIMES A WEEK;?
     Route: 058

REACTIONS (4)
  - Posterior reversible encephalopathy syndrome [None]
  - Stridor [None]
  - Oropharyngeal pain [None]
  - Inflammation [None]

NARRATIVE: CASE EVENT DATE: 20220717
